FAERS Safety Report 20006161 (Version 2)
Quarter: 2022Q2

REPORT INFORMATION
  Report Type: Spontaneous
  Country: US (occurrence: US)
  Receive Date: 20211027
  Receipt Date: 20220603
  Transmission Date: 20220720
  Serious: Yes (Hospitalization, Other)
  Sender: FDA-Public Use
  Company Number: US-SA-SAC20211026000100

PATIENT
  Age: 69 Year
  Sex: Female

DRUGS (2)
  1. AUBAGIO [Suspect]
     Active Substance: TERIFLUNOMIDE
     Indication: Multiple sclerosis
     Dosage: 14 MG
  2. TECFIDERA [Concomitant]
     Active Substance: DIMETHYL FUMARATE
     Dosage: UNK

REACTIONS (14)
  - Hip fracture [Unknown]
  - Fall [Unknown]
  - Pneumonia [Unknown]
  - Seizure [Unknown]
  - Multiple sclerosis relapse [Unknown]
  - Balance disorder [Unknown]
  - Gait inability [Unknown]
  - Hypoaesthesia [Unknown]
  - Memory impairment [Unknown]
  - Paraesthesia [Unknown]
  - Anxiety [Unknown]
  - Dizziness [Unknown]
  - Rib fracture [Unknown]
  - Bronchitis [Unknown]

NARRATIVE: CASE EVENT DATE: 20220501
